FAERS Safety Report 4317522-4 (Version None)
Quarter: 2004Q1

REPORT INFORMATION
  Report Type: 
  Country: None (occurrence: None)
  Receive Date: 20040312
  Receipt Date: 20040303
  Transmission Date: 20041129
  Serious: Yes (Death)
  Sender: FDA-Public Use
  Company Number: 163-20785-03090230 (1)

PATIENT
  Age: 60 Year
  Sex: Male

DRUGS (1)
  1. THALOMID [Suspect]
     Indication: MALIGNANT NEOPLASM OF PLEURA
     Dosage: 300 MG, QD, ORAL
     Route: 048
     Dates: start: 20030604, end: 20030701

REACTIONS (5)
  - DRUG INEFFECTIVE [None]
  - MALIGNANT NEOPLASM PROGRESSION [None]
  - METASTASES TO PERITONEUM [None]
  - PERFORMANCE STATUS DECREASED [None]
  - PERITONEAL MESOTHELIOMA MALIGNANT ADVANCED [None]
